FAERS Safety Report 6688859-9 (Version None)
Quarter: 2010Q2

REPORT INFORMATION
  Report Type: 
  Country: None (occurrence: None)
  Receive Date: 20100420
  Receipt Date: 20100406
  Transmission Date: 20101027
  Serious: Yes (Other)
  Sender: FDA-Public Use
  Company Number: BE-ELI_LILLY_AND_COMPANY-BE201003002964

PATIENT
  Sex: Female

DRUGS (6)
  1. FORTEO [Suspect]
     Dosage: UNK, UNK
     Dates: start: 20100219, end: 20100319
  2. COZAAR [Concomitant]
     Dosage: UNK, UNKNOWN
     Route: 065
  3. LASIX [Concomitant]
     Dosage: UNK, UNKNOWN
     Route: 065
  4. URFADYN [Concomitant]
     Dosage: UNK, UNKNOWN
     Route: 065
  5. LYRICA [Concomitant]
     Dosage: UNK, UNKNOWN
     Route: 065
  6. MIRTAZAPINE [Concomitant]
     Dosage: UNK, UNKNOWN
     Route: 065

REACTIONS (5)
  - CYSTITIS [None]
  - DIARRHOEA [None]
  - HOT FLUSH [None]
  - HYPERTENSIVE CRISIS [None]
  - VERTIGO [None]
